FAERS Safety Report 4639081-9 (Version None)
Quarter: 2005Q2

REPORT INFORMATION
  Report Type: 
  Country: None (occurrence: None)
  Receive Date: 20050418
  Receipt Date: 20050404
  Transmission Date: 20051028
  Serious: Yes (Other)
  Sender: FDA-Public Use
  Company Number: HQWYE871407MAR05

PATIENT
  Age: 27 Year
  Sex: Male

DRUGS (5)
  1. EFFEXOR [Suspect]
     Indication: DEPRESSION
     Dosage: 150 MG DOSE, FREQUENCY UNSPECIFIED; ORAL
     Route: 048
  2. EFFEXOR [Suspect]
     Indication: NEUROSIS
     Dosage: 150 MG DOSE, FREQUENCY UNSPECIFIED; ORAL
     Route: 048
  3. EFFEXOR [Suspect]
     Indication: OBSESSIVE-COMPULSIVE DISORDER
     Dosage: 150 MG DOSE, FREQUENCY UNSPECIFIED; ORAL
     Route: 048
  4. EFFEXOR [Suspect]
     Indication: POST CONCUSSION SYNDROME
     Dosage: 150 MG DOSE, FREQUENCY UNSPECIFIED; ORAL
     Route: 048
  5. EFFEXOR [Suspect]
     Indication: SCHIZOID PERSONALITY DISORDER
     Dosage: 150 MG DOSE, FREQUENCY UNSPECIFIED; ORAL
     Route: 048

REACTIONS (6)
  - CONDITION AGGRAVATED [None]
  - DEFORMITY [None]
  - DRUG INEFFECTIVE [None]
  - EXCORIATION [None]
  - PYODERMA [None]
  - SELF INJURIOUS BEHAVIOUR [None]
